FAERS Safety Report 23416561 (Version 2)
Quarter: 2024Q1

REPORT INFORMATION
  Report Type: Spontaneous
  Country: CA (occurrence: CA)
  Receive Date: 20240118
  Receipt Date: 20240124
  Transmission Date: 20240409
  Serious: Yes (Other)
  Sender: FDA-Public Use
  Company Number: CA-ROCHE-3488861

PATIENT
  Age: 48 Year
  Sex: Female

DRUGS (8)
  1. DIAZEPAM [Suspect]
     Active Substance: DIAZEPAM
     Indication: Suicide attempt
     Route: 048
  2. DIAZEPAM [Suspect]
     Active Substance: DIAZEPAM
     Indication: Sleep disorder
  3. DIAZEPAM [Suspect]
     Active Substance: DIAZEPAM
     Indication: Seizure
  4. LORAZEPAM [Suspect]
     Active Substance: LORAZEPAM
     Indication: Seizure
     Route: 060
  5. LORAZEPAM [Suspect]
     Active Substance: LORAZEPAM
     Route: 060
  6. LORAZEPAM [Suspect]
     Active Substance: LORAZEPAM
     Route: 060
  7. KETAMINE [Suspect]
     Active Substance: KETAMINE
     Indication: Seizure
     Dosage: INTRA-NASAL
     Route: 060
  8. VALPROIC ACID [Concomitant]
     Active Substance: VALPROIC ACID
     Indication: Mood swings
     Route: 048

REACTIONS (5)
  - Suicide attempt [Unknown]
  - Fatigue [Unknown]
  - Drug dependence [Recovered/Resolved]
  - Off label use [Unknown]
  - Intentional overdose [Unknown]
